FAERS Safety Report 19430389 (Version 1)
Quarter: 2021Q2

REPORT INFORMATION
  Report Type: Spontaneous
  Country: US (occurrence: US)
  Receive Date: 20210618
  Receipt Date: 20210618
  Transmission Date: 20210717
  Serious: Yes (Other)
  Sender: FDA-Public Use
  Company Number: US-SUN PHARMACEUTICAL INDUSTRIES LTD-2021R1-300186

PATIENT
  Sex: Male
  Weight: 3.6 kg

DRUGS (4)
  1. DEXAMETHASONE. [Suspect]
     Active Substance: DEXAMETHASONE
     Indication: LIVER DISORDER
     Dosage: UNK
     Route: 065
  2. CYCLOSPORIN?A [Suspect]
     Active Substance: CYCLOSPORINE
     Indication: PRODUCT USED FOR UNKNOWN INDICATION
     Dosage: UNK
     Route: 065
  3. CYCLOSPORIN?A [Suspect]
     Active Substance: CYCLOSPORINE
     Indication: LIVER DISORDER
  4. ETOPOSIDE. [Suspect]
     Active Substance: ETOPOSIDE
     Indication: LIVER DISORDER
     Dosage: UNK
     Route: 065

REACTIONS (1)
  - Anaemia [Unknown]
